FAERS Safety Report 8145214-2 (Version None)
Quarter: 2012Q1

REPORT INFORMATION
  Report Type: 
  Country: None (occurrence: None)
  Receive Date: 20120217
  Receipt Date: 20120208
  Transmission Date: 20120608
  Serious: Yes (Hospitalization, Other)
  Sender: FDA-Public Use
  Company Number: US-US-EMD SERONO, INC.-7032238

PATIENT
  Sex: Male
  Weight: 91 kg

DRUGS (4)
  1. UNSPECIFIED MEDICATIONS [Concomitant]
  2. BLOOD THINNERS [Concomitant]
  3. TOPAMX [Concomitant]
     Indication: CONVULSION
     Dates: start: 20080101
  4. REBIF [Suspect]
     Indication: MULTIPLE SCLEROSIS
     Route: 058
     Dates: start: 20100801

REACTIONS (6)
  - GRAND MAL CONVULSION [None]
  - BIPOLAR DISORDER [None]
  - POST-TRAUMATIC STRESS DISORDER [None]
  - THROMBOSIS [None]
  - KNEE ARTHROPLASTY [None]
  - TREMOR [None]
